FAERS Safety Report 5763543-4 (Version None)
Quarter: 2008Q2

REPORT INFORMATION
  Report Type: 
  Country: None (occurrence: None)
  Receive Date: 20080610
  Receipt Date: 20080602
  Transmission Date: 20081010
  Serious: Yes (Death)
  Sender: FDA-Public Use
  Company Number: CA-JNJFOC-20080600211

PATIENT
  Age: 83 Year
  Sex: Male

DRUGS (2)
  1. TYLENOL W/ CODEINE NO. 3 [Suspect]
     Indication: DRUG USE FOR UNKNOWN INDICATION
     Route: 048
  2. OXYCONTIN [Concomitant]

REACTIONS (7)
  - DEATH [None]
  - DRUG ADMINISTRATION ERROR [None]
  - DYSPNOEA [None]
  - HYPERHIDROSIS [None]
  - PAIN [None]
  - RESTLESSNESS [None]
  - SPEECH DISORDER [None]
